FAERS Safety Report 19646232 (Version 1)
Quarter: 2021Q3

REPORT INFORMATION
  Report Type: Spontaneous
  Country: US (occurrence: US)
  Receive Date: 20210730
  Receipt Date: 20210730
  Transmission Date: 20211014
  Serious: Yes (Hospitalization)
  Sender: FDA-Public Use
  Company Number: None

PATIENT
  Sex: Male

DRUGS (13)
  1. NITROGLYCER DIS [Concomitant]
  2. ZANTAC [Concomitant]
     Active Substance: RANITIDINE HYDROCHLORIDE
  3. DICLOFENAC GL [Concomitant]
  4. BRILINTA [Concomitant]
     Active Substance: TICAGRELOR
  5. LASIX [Concomitant]
     Active Substance: FUROSEMIDE
  6. TRAMADOL HCL [Concomitant]
     Active Substance: TRAMADOL HYDROCHLORIDE
  7. VALSART/HCTZ [Concomitant]
     Active Substance: HYDROCHLOROTHIAZIDE\VALSARTAN
  8. ESBRIET [Suspect]
     Active Substance: PIRFENIDONE
     Indication: IDIOPATHIC PULMONARY FIBROSIS
     Dosage: 3 CAPS TID PO
     Route: 048
     Dates: start: 20180208
  9. AMLODIPINE [Concomitant]
     Active Substance: AMLODIPINE BESYLATE
  10. POTASSIUM CHLORIDE. [Concomitant]
     Active Substance: POTASSIUM CHLORIDE
  11. CRESTOR [Concomitant]
     Active Substance: ROSUVASTATIN CALCIUM
  12. METOPROL TAR [Concomitant]
  13. MULTI?VIT/FL CHW [Concomitant]

REACTIONS (5)
  - Therapy interrupted [None]
  - Dyspnoea [None]
  - Haemorrhage [None]
  - Nephrolithiasis [None]
  - Abdominal distension [None]
